FAERS Safety Report 4642800-9 (Version None)
Quarter: 2005Q2

REPORT INFORMATION
  Report Type: 
  Country: None (occurrence: None)
  Receive Date: 20050420
  Receipt Date: 20050408
  Transmission Date: 20051028
  Serious: Yes (Disabling)
  Sender: FDA-Public Use
  Company Number: ES-2005-005233

PATIENT
  Age: 76 Year
  Sex: Female

DRUGS (1)
  1. MAGNEVIST [Suspect]
     Dosage: 15 ML
     Dates: start: 20050228, end: 20050228

REACTIONS (2)
  - CONTRAST MEDIA REACTION [None]
  - MALAISE [None]
